FAERS Safety Report 20655549 (Version 1)
Quarter: 2022Q1

REPORT INFORMATION
  Report Type: Spontaneous
  Country: US (occurrence: None)
  Receive Date: 20220330
  Receipt Date: 20220330
  Transmission Date: 20220423
  Serious: Yes (Other)
  Sender: FDA-Public Use
  Company Number: None

PATIENT
  Age: 62 Year
  Sex: Female
  Weight: 90.72 kg

DRUGS (1)
  1. PANTOPRAZOLE [Suspect]
     Active Substance: PANTOPRAZOLE
     Indication: Gastrooesophageal reflux disease
     Dosage: FREQUENCY : DAILY;?
     Route: 048
     Dates: start: 20220131, end: 20220318

REACTIONS (7)
  - Anxiety [None]
  - Headache [None]
  - Insomnia [None]
  - Fatigue [None]
  - Arthralgia [None]
  - Joint swelling [None]
  - Mood altered [None]

NARRATIVE: CASE EVENT DATE: 20220228
